FAERS Safety Report 5422288-0 (Version None)
Quarter: 2007Q3

REPORT INFORMATION
  Report Type: 
  Country: None (occurrence: None)
  Receive Date: 20070820
  Receipt Date: 20070820
  Transmission Date: 20080115
  Serious: Yes (Hospitalization)
  Sender: FDA-Public Use
  Company Number: None

PATIENT
  Age: 83 Year
  Sex: Male

DRUGS (14)
  1. METFORMIN HCL [Suspect]
     Indication: TYPE 2 DIABETES MELLITUS
     Dosage: 500 MG PO
     Route: 048
  2. CASODEX [Concomitant]
  3. THEOPHYLLINE [Concomitant]
  4. LISINOPRIL [Concomitant]
  5. GLUCOPHAGE [Concomitant]
  6. GLYBURIDE [Concomitant]
  7. HYDROCHLOROTHIAZIDE [Concomitant]
  8. ASPIRIN [Concomitant]
  9. MULTI-VITAMIN [Concomitant]
  10. NAMENDA [Concomitant]
  11. DETROL [Concomitant]
  12. COMBIVENT [Concomitant]
  13. LOVASTATIN [Concomitant]
  14. TUMS [Concomitant]

REACTIONS (3)
  - HYPOGLYCAEMIA [None]
  - LACTIC ACIDOSIS [None]
  - RENAL FAILURE [None]
